FAERS Safety Report 24264966 (Version 1)
Quarter: 2024Q3

REPORT INFORMATION
  Report Type: Spontaneous
  Country: US (occurrence: None)
  Receive Date: 20240828
  Receipt Date: 20240828
  Transmission Date: 20241017
  Serious: Yes (Other)
  Sender: Public
  Company Number: None

PATIENT
  Age: 51 Year
  Sex: Female
  Weight: 52.2 kg

DRUGS (10)
  1. TERCONAZOLE [Suspect]
     Active Substance: TERCONAZOLE
     Indication: Fungal infection
     Dosage: OTHER QUANTITY : 1 APPLICATOR;?FREQUENCY : AT BEDTIME;?
     Route: 067
     Dates: start: 20240827
  2. LINZESS [Concomitant]
     Active Substance: LINACLOTIDE
  3. ESTRADIOL TRANSDERMAL SYSTEM [Concomitant]
     Active Substance: ESTRADIOL
  4. PROGESTERONE [Concomitant]
  5. LEVOTHYROXINE [Concomitant]
  6. multivitamin [Concomitant]
  7. CALCIUM [Concomitant]
  8. PROBIOTICS NOS [Concomitant]
     Active Substance: PROBIOTICS NOS
  9. MAGNESIUM [Concomitant]
  10. BISACODYL [Concomitant]
     Active Substance: BISACODYL

REACTIONS (3)
  - Device use issue [None]
  - Inadequate aseptic technique in use of product [None]
  - Circumstance or information capable of leading to medication error [None]

NARRATIVE: CASE EVENT DATE: 20240828
